FAERS Safety Report 19519263 (Version 1)
Quarter: 2021Q3

REPORT INFORMATION
  Report Type: Spontaneous
  Country: US (occurrence: US)
  Receive Date: 20210712
  Receipt Date: 20210712
  Transmission Date: 20211014
  Serious: No
  Sender: FDA-Public Use
  Company Number: None

PATIENT
  Age: 47 Year
  Sex: Female
  Weight: 49.5 kg

DRUGS (3)
  1. PROTONIX [Concomitant]
     Active Substance: PANTOPRAZOLE SODIUM
  2. XANAX [Concomitant]
     Active Substance: ALPRAZOLAM
  3. MEDROXY PROGESTERONE ACETATE [Suspect]
     Active Substance: MEDROXYPROGESTERONE ACETATE
     Indication: HOT FLUSH
     Dosage: ?          QUANTITY:30 TABLET(S);OTHER ROUTE:HAIR FALLING OUT?
     Dates: start: 20210624, end: 20210705

REACTIONS (1)
  - Alopecia [None]

NARRATIVE: CASE EVENT DATE: 20210628
